FAERS Safety Report 7747466-7 (Version None)
Quarter: 2011Q3

REPORT INFORMATION
  Report Type: 
  Country: None (occurrence: None)
  Receive Date: 20110913
  Receipt Date: 20110906
  Transmission Date: 20111222
  Serious: Yes (Other)
  Sender: FDA-Public Use
  Company Number: US-BAYER-201013925NA

PATIENT
  Age: 35 Year
  Sex: Female
  Weight: 100 kg

DRUGS (14)
  1. YASMIN [Suspect]
     Indication: PREMENSTRUAL SYNDROME
  2. YASMIN [Suspect]
     Indication: ORAL CONTRACEPTION
     Route: 048
     Dates: start: 20081001, end: 20090801
  3. YASMIN [Suspect]
  4. PROAIR HFA [Concomitant]
     Indication: CHRONIC OBSTRUCTIVE PULMONARY DISEASE
  5. YAZ [Suspect]
     Indication: PRODUCT USED FOR UNKNOWN INDICATION
     Route: 048
  6. OTHER ANALGESICS AND ANTIPYRETICS [Concomitant]
     Indication: MIGRAINE
  7. ALBUTEROL [Concomitant]
     Indication: CHRONIC OBSTRUCTIVE PULMONARY DISEASE
     Route: 055
  8. SPIRIVA [Concomitant]
     Indication: CHRONIC OBSTRUCTIVE PULMONARY DISEASE
  9. HYDROCODONE [Concomitant]
     Indication: EXOSTOSIS
  10. HYDROCODONE [Concomitant]
     Indication: SCOLIOSIS
  11. TIZANIDINE HCL [Concomitant]
     Dosage: 4 MG, BID
     Route: 048
     Dates: start: 20090423
  12. OMEPRAZOLE [Concomitant]
     Dosage: 20 MG, QD
     Route: 048
     Dates: start: 20090423
  13. METOCLOPRAMIDE [Concomitant]
     Dosage: 10 MG, TID
     Route: 048
     Dates: start: 20090423
  14. URSODIOL [Concomitant]
     Dosage: 300 MG, BID
     Route: 048
     Dates: start: 20090423

REACTIONS (4)
  - INJURY [None]
  - ABDOMINAL TENDERNESS [None]
  - CHOLECYSTITIS CHRONIC [None]
  - BILIARY COLIC [None]
